FAERS Safety Report 5634128-5 (Version None)
Quarter: 2008Q1

REPORT INFORMATION
  Report Type: 
  Country: None (occurrence: None)
  Receive Date: 20080131
  Receipt Date: 20070719
  Transmission Date: 20080703
  Serious: Yes (Hospitalization)
  Sender: FDA-Public Use
  Company Number: 159163USA

PATIENT
  Sex: Female

DRUGS (1)
  1. COPAXONE [Suspect]
     Indication: MULTIPLE SCLEROSIS
     Dosage: (20 MG), SUBCUTANEOUS
     Route: 058
     Dates: start: 20000101, end: 20050101

REACTIONS (3)
  - HYPOAESTHESIA [None]
  - INTERVERTEBRAL DISC COMPRESSION [None]
  - PAIN IN EXTREMITY [None]
